FAERS Safety Report 6521213-9 (Version None)
Quarter: 2009Q4

REPORT INFORMATION
  Report Type: 
  Country: None (occurrence: None)
  Receive Date: 20091230
  Receipt Date: 20091228
  Transmission Date: 20100525
  Serious: Yes (Other)
  Sender: FDA-Public Use
  Company Number: US-ASTRAZENECA-2008UW10020

PATIENT
  Age: 15976 Day
  Sex: Female
  Weight: 88.5 kg

DRUGS (5)
  1. SEROQUEL [Suspect]
     Indication: BIPOLAR I DISORDER
     Dosage: 100 - 150 MG
     Route: 048
     Dates: start: 20020401, end: 20040601
  2. SEROQUEL [Suspect]
     Indication: PSYCHOTIC DISORDER
     Dosage: 100 - 150 MG
     Route: 048
     Dates: start: 20020401, end: 20040601
  3. SEROQUEL [Suspect]
     Dosage: 25-400 MG
     Route: 048
     Dates: start: 20040624, end: 20081119
  4. SEROQUEL [Suspect]
     Dosage: 25-400 MG
     Route: 048
     Dates: start: 20040624, end: 20081119
  5. PROZAC [Concomitant]
     Dates: start: 20040601

REACTIONS (10)
  - ABDOMINAL NEOPLASM [None]
  - BLOOD CHOLESTEROL INCREASED [None]
  - DIABETES MELLITUS [None]
  - METRORRHAGIA [None]
  - MIGRAINE [None]
  - OBESITY [None]
  - TONGUE NEOPLASM BENIGN [None]
  - TOOTH DISORDER [None]
  - TYPE 2 DIABETES MELLITUS [None]
  - UTERINE LEIOMYOMA [None]
